FAERS Safety Report 17042332 (Version 2)
Quarter: 2019Q4

REPORT INFORMATION
  Report Type: Spontaneous
  Country: US (occurrence: US)
  Receive Date: 20191118
  Receipt Date: 20191125
  Transmission Date: 20200122
  Serious: Yes (Hospitalization)
  Sender: FDA-Public Use
  Company Number: US-BAYER-2019-204969

PATIENT
  Age: 25 Year
  Sex: Male

DRUGS (1)
  1. CHLORPHENIRAMINE MALEATE + DEXTROMETHORPHAN HYDROBROMIDE [Suspect]
     Active Substance: CHLORPHENIRAMINE MALEATE\DEXTROMETHORPHAN HYDROBROMIDE
     Indication: NASOPHARYNGITIS

REACTIONS (5)
  - Acute psychosis [Recovered/Resolved]
  - Toxicity to various agents [None]
  - Drug abuse [None]
  - Overdose [None]
  - Urinary retention [None]
